FAERS Safety Report 23270545 (Version 2)
Quarter: 2024Q1

REPORT INFORMATION
  Report Type: Spontaneous
  Country: US (occurrence: US)
  Receive Date: 20231207
  Receipt Date: 20240108
  Transmission Date: 20240410
  Serious: Yes (Other)
  Sender: FDA-Public Use
  Company Number: US-AUROBINDO-AUR-APL-2023-077146

PATIENT
  Age: 79 Year
  Sex: Male

DRUGS (12)
  1. PIPERACILLIN AND TAZOBACTAM [Suspect]
     Active Substance: PIPERACILLIN SODIUM\TAZOBACTAM SODIUM
     Indication: Conjunctivitis
     Dosage: UNK
     Route: 042
  2. PIPERACILLIN AND TAZOBACTAM [Suspect]
     Active Substance: PIPERACILLIN SODIUM\TAZOBACTAM SODIUM
     Indication: Pseudomonas infection
  3. PREDNISOLONE [Suspect]
     Active Substance: PREDNISOLONE
     Indication: Conjunctivitis
     Dosage: UNK, FOUR TIMES/DAY
     Route: 065
  4. PREDNISOLONE [Suspect]
     Active Substance: PREDNISOLONE
     Indication: Pseudomonas infection
  5. TOBRAMYCIN [Suspect]
     Active Substance: TOBRAMYCIN
     Indication: Conjunctivitis
     Dosage: UNK
     Route: 042
  6. TOBRAMYCIN [Suspect]
     Active Substance: TOBRAMYCIN
     Indication: Pseudomonas infection
  7. VANCOMYCIN [Suspect]
     Active Substance: VANCOMYCIN
     Indication: Conjunctivitis
     Dosage: UNK (EVERY 2H)
     Route: 065
  8. VANCOMYCIN [Suspect]
     Active Substance: VANCOMYCIN
     Indication: Pseudomonas infection
  9. POLYMYXIN B SULFATE\TRIMETHOPRIM SULFATE [Suspect]
     Active Substance: POLYMYXIN B SULFATE\TRIMETHOPRIM SULFATE
     Indication: Conjunctivitis
     Dosage: UNK, FOUR TIMES/DAY
     Route: 061
  10. POLYMYXIN B SULFATE\TRIMETHOPRIM SULFATE [Suspect]
     Active Substance: POLYMYXIN B SULFATE\TRIMETHOPRIM SULFATE
     Indication: Pseudomonas infection
  11. TOBRAMYCIN AND DEXAMETHASONE [Suspect]
     Active Substance: DEXAMETHASONE\TOBRAMYCIN
     Indication: Conjunctivitis
     Dosage: UNK (NIGHTLY)
     Route: 065
  12. TOBRAMYCIN AND DEXAMETHASONE [Suspect]
     Active Substance: DEXAMETHASONE\TOBRAMYCIN
     Indication: Pseudomonas infection

REACTIONS (1)
  - Drug ineffective [Unknown]
